FAERS Safety Report 11965520 (Version 3)
Quarter: 2017Q1

REPORT INFORMATION
  Report Type: Spontaneous
  Country: JP (occurrence: JP)
  Receive Date: 20160127
  Receipt Date: 20170209
  Transmission Date: 20170428
  Serious: Yes (Other)
  Sender: FDA-Public Use
  Company Number: JP-SUN PHARMACEUTICAL INDUSTRIES LTD-2016R1-110169

PATIENT
  Age: 64 Year
  Sex: Female
  Weight: 53.4 kg

DRUGS (2)
  1. DOCETAXEL. [Suspect]
     Active Substance: DOCETAXEL
     Indication: LEIOMYOSARCOMA METASTATIC
     Dosage: UNK
     Dates: start: 200803
  2. GEMCITABINE [Suspect]
     Active Substance: GEMCITABINE\GEMCITABINE HYDROCHLORIDE
     Indication: LEIOMYOSARCOMA METASTATIC
     Dosage: UNK
     Dates: start: 200803

REACTIONS (5)
  - Leukopenia [Unknown]
  - Therapeutic response decreased [Unknown]
  - Anaemia [Unknown]
  - Disease progression [Unknown]
  - Neuropathy peripheral [Unknown]
